FAERS Safety Report 5833294-6 (Version None)
Quarter: 2008Q3

REPORT INFORMATION
  Report Type: 
  Country: None (occurrence: None)
  Receive Date: 20080804
  Receipt Date: 20080804
  Transmission Date: 20090109
  Serious: Yes (Disabling, Other)
  Sender: FDA-Public Use
  Company Number: None

PATIENT
  Sex: Female
  Weight: 69.8539 kg

DRUGS (1)
  1. BONIVA [Suspect]
     Indication: OSTEOPOROSIS
     Dosage: ONE TIME
     Dates: start: 20080607

REACTIONS (10)
  - ASTHENIA [None]
  - DECREASED ACTIVITY [None]
  - IMPAIRED DRIVING ABILITY [None]
  - IRITIS [None]
  - MOBILITY DECREASED [None]
  - MUSCLE SPASMS [None]
  - NECK PAIN [None]
  - NERVOUS SYSTEM DISORDER [None]
  - PAIN [None]
  - PAIN IN JAW [None]
